FAERS Safety Report 5682780-0 (Version None)
Quarter: 2008Q1

REPORT INFORMATION
  Report Type: 
  Country: None (occurrence: None)
  Receive Date: 20080326
  Receipt Date: 20080326
  Transmission Date: 20080703
  Serious: Yes (Other)
  Sender: FDA-Public Use
  Company Number: None

PATIENT
  Sex: Female

DRUGS (1)
  1. GADOBENATE DIMEGLUMINE BRACCO [Suspect]
     Indication: NUCLEAR MAGNETIC RESONANCE IMAGING
     Dosage: 13 ML ONCE IV
     Route: 042
     Dates: start: 20080323, end: 20080323

REACTIONS (6)
  - COUGH [None]
  - ERYTHEMA [None]
  - ERYTHEMA OF EYELID [None]
  - EYELID OEDEMA [None]
  - PHARYNGOLARYNGEAL PAIN [None]
  - URTICARIA [None]
